FAERS Safety Report 6252432-7 (Version None)
Quarter: 2009Q2

REPORT INFORMATION
  Report Type: 
  Country: None (occurrence: None)
  Receive Date: 20090629
  Receipt Date: 20090615
  Transmission Date: 20091009
  Serious: Yes (Death)
  Sender: FDA-Public Use
  Company Number: 8047809

PATIENT
  Age: 24 Year
  Sex: Male

DRUGS (5)
  1. LORTAB [Suspect]
     Indication: BACK PAIN
     Dosage: PO
     Route: 048
  2. OPANA ER [Suspect]
     Indication: BACK PAIN
     Dosage: 10 MG 2/D PO
     Route: 048
     Dates: start: 20081229
  3. OPANA ER [Suspect]
     Indication: BACK PAIN
     Dosage: 20 MG 2/D PO
     Route: 048
  4. RESTORIL [Suspect]
     Dosage: 15 MG
  5. VALIUM [Suspect]
     Dosage: 10 MG

REACTIONS (1)
  - DEATH [None]
